FAERS Safety Report 20615687 (Version 3)
Quarter: 2022Q2

REPORT INFORMATION
  Report Type: Spontaneous
  Country: DE (occurrence: DE)
  Receive Date: 20220321
  Receipt Date: 20220519
  Transmission Date: 20220720
  Serious: Yes (Life-Threatening, Hospitalization, Disabling, Other)
  Sender: FDA-Public Use
  Company Number: DE-NOVARTISPH-NVSC2022DE063345

PATIENT
  Sex: Female
  Weight: 90 kg

DRUGS (2)
  1. GILENYA [Suspect]
     Active Substance: FINGOLIMOD HYDROCHLORIDE
     Indication: Multiple sclerosis
     Dosage: 1 DOSAGE FORM, QD (STOP DATE: IN 2022)
     Route: 065
  2. TAMOXIFEN [Concomitant]
     Active Substance: TAMOXIFEN
     Indication: Mastectomy
     Dosage: UNK (START DATE: IN 2022)
     Route: 065

REACTIONS (1)
  - Intraductal proliferative breast lesion [Unknown]

NARRATIVE: CASE EVENT DATE: 20220315
